FAERS Safety Report 24903537 (Version 1)
Quarter: 2025Q1

REPORT INFORMATION
  Report Type: Spontaneous
  Country: SA (occurrence: SA)
  Receive Date: 20250130
  Receipt Date: 20250130
  Transmission Date: 20250409
  Serious: Yes (Hospitalization, Other)
  Sender: HIKMA
  Company Number: SA-HIKMA PHARMACEUTICALS-SA-H14001-25-00159

PATIENT
  Age: 64 Year
  Sex: Male

DRUGS (9)
  1. CISPLATIN [Suspect]
     Active Substance: CISPLATIN
     Indication: Metastases to bone
     Route: 065
     Dates: start: 20241030
  2. CISPLATIN [Suspect]
     Active Substance: CISPLATIN
     Indication: Nasopharyngeal cancer
     Route: 065
     Dates: start: 20241009
  3. CISPLATIN [Suspect]
     Active Substance: CISPLATIN
     Route: 065
     Dates: start: 20241211
  4. GEMCITABINE [Suspect]
     Active Substance: GEMCITABINE
     Indication: Metastases to bone
     Route: 065
     Dates: start: 20241030
  5. GEMCITABINE [Suspect]
     Active Substance: GEMCITABINE
     Indication: Nasopharyngeal cancer
     Route: 065
     Dates: start: 20241009
  6. GEMCITABINE [Suspect]
     Active Substance: GEMCITABINE
     Route: 065
     Dates: start: 20241211
  7. TORIPALIMAB [Suspect]
     Active Substance: TORIPALIMAB
     Indication: Metastases to bone
     Dosage: 1 DOSAGE FORM, 3W
     Route: 065
     Dates: start: 20241030
  8. TORIPALIMAB [Suspect]
     Active Substance: TORIPALIMAB
     Indication: Nasopharyngeal cancer
     Dosage: 1 DOSAGE FORM, 3W
     Route: 065
     Dates: start: 20241009
  9. TORIPALIMAB [Suspect]
     Active Substance: TORIPALIMAB
     Dosage: 1 DOSAGE FORM, 3W
     Route: 065
     Dates: start: 20241211

REACTIONS (2)
  - Pneumonia [Unknown]
  - Product dose omission issue [Unknown]
